FAERS Safety Report 21424123 (Version 1)
Quarter: 2022Q4

REPORT INFORMATION
  Report Type: Spontaneous
  Country: US (occurrence: US)
  Receive Date: 20221007
  Receipt Date: 20221007
  Transmission Date: 20230113
  Serious: Yes (Hospitalization)
  Sender: FDA-Public Use
  Company Number: US-JNJFOC-20161121766

PATIENT
  Sex: Female

DRUGS (2)
  1. CARIPRAZINE HYDROCHLORIDE [Suspect]
     Active Substance: CARIPRAZINE HYDROCHLORIDE
     Indication: Product used for unknown indication
     Dosage: 3 MG, TID
  2. INVEGA SUSTENNA [Suspect]
     Active Substance: PALIPERIDONE PALMITATE
     Indication: Product used for unknown indication
     Dosage: 117 MG
     Route: 030

REACTIONS (1)
  - Dystonia [Unknown]
